FAERS Safety Report 8535471 (Version 2)
Quarter: 2014Q2

REPORT INFORMATION
  Report Type: Spontaneous
  Country: US (occurrence: US)
  Receive Date: 20120430
  Receipt Date: 20140404
  Transmission Date: 20141212
  Serious: Yes (Other)
  Sender: FDA-Public Use
  Company Number: US-BAYER-2012-039846

PATIENT
  Age: 31 Year
  Sex: Female

DRUGS (6)
  1. YASMIN [Suspect]
     Indication: ACNE
     Dosage: UNK
     Dates: start: 200212
  2. ADVIL [Concomitant]
  3. PEPTOBISMOL [Concomitant]
  4. FLONASE [Concomitant]
     Dosage: UNK UNK, PRN
  5. ZYRTEC [Concomitant]
     Indication: CONTRACEPTION
     Dosage: 10 MG, PRN
  6. ZYRTEC [Concomitant]
     Indication: ACNE

REACTIONS (7)
  - Cholelithiasis [None]
  - Cholecystitis chronic [None]
  - Injury [None]
  - Pain [None]
  - Anxiety [None]
  - Emotional distress [None]
  - Fear [None]
